FAERS Safety Report 26194921 (Version 1)
Quarter: 2025Q4

REPORT INFORMATION
  Report Type: Spontaneous
  Country: GB (occurrence: GB)
  Receive Date: 20251224
  Receipt Date: 20251224
  Transmission Date: 20260118
  Serious: Yes (Hospitalization, Other)
  Sender: MYLAN
  Company Number: GB-MYLANLABS-2025M1109803

PATIENT
  Age: 52 Year
  Sex: Male

DRUGS (6)
  1. CLOZARIL [Suspect]
     Active Substance: CLOZAPINE
     Indication: Schizophrenia
     Dosage: UNK, BID (200MG OM AND 250MG ON)
     Dates: start: 20060508, end: 20110803
  2. CLOZARIL [Suspect]
     Active Substance: CLOZAPINE
     Dosage: 450 MILLIGRAM, PM (REMAINS ON CLOZAPINE 450MG NOCTE)
  3. CLOZARIL [Suspect]
     Active Substance: CLOZAPINE
     Dosage: UNK, BID (100MG MANE AND 450MG NOCTE)
  4. CLOZARIL [Suspect]
     Active Substance: CLOZAPINE
     Dosage: 450 MILLIGRAM, PM (REDUCE CLOZAPINE TO 450MG ON)
  5. AMISULPRIDE [Suspect]
     Active Substance: AMISULPRIDE
     Dosage: 400 MILLIGRAM, BID
     Dates: start: 201409
  6. AMISULPRIDE [Suspect]
     Active Substance: AMISULPRIDE
     Dosage: 300 MILLIGRAM, BID (DOSE DECREASED TO 300MG BD)
     Dates: start: 20140918

REACTIONS (7)
  - Schizophrenia [Unknown]
  - Asthenia [Unknown]
  - Salivary hypersecretion [Unknown]
  - Weight increased [Unknown]
  - Somnolence [Unknown]
  - Tremor [Unknown]
  - Treatment noncompliance [Unknown]

NARRATIVE: CASE EVENT DATE: 20140612
